FAERS Safety Report 7676800-1 (Version None)
Quarter: 2011Q3

REPORT INFORMATION
  Report Type: 
  Country: None (occurrence: None)
  Receive Date: 20110811
  Receipt Date: 20110801
  Transmission Date: 20111222
  Serious: Yes (Hospitalization)
  Sender: FDA-Public Use
  Company Number: TN-SANOFI-AVENTIS-2011SA049070

PATIENT
  Sex: Male

DRUGS (8)
  1. ISONIAZID [Suspect]
     Indication: PULMONARY TUBERCULOSIS
     Route: 065
     Dates: start: 20100708, end: 20100828
  2. RIFAMPICIN [Suspect]
     Indication: PULMONARY TUBERCULOSIS
     Route: 065
     Dates: start: 20100708, end: 20100828
  3. PYRAZINAMIDE [Suspect]
     Indication: PULMONARY TUBERCULOSIS
     Route: 065
     Dates: start: 20100708, end: 20100828
  4. ISONIAZID [Suspect]
     Route: 065
     Dates: start: 20100913, end: 20100913
  5. METFORMIN HCL [Concomitant]
     Route: 065
     Dates: start: 20100601
  6. ETHAMBUTOL HYDROCHLORIDE [Suspect]
     Route: 065
     Dates: start: 20101010, end: 20101010
  7. ETHAMBUTOL HYDROCHLORIDE [Suspect]
     Indication: PULMONARY TUBERCULOSIS
     Route: 065
     Dates: start: 20100708, end: 20100828
  8. GLIMEPIRIDE [Concomitant]
     Route: 065
     Dates: start: 20100601

REACTIONS (4)
  - RASH MACULO-PAPULAR [None]
  - GENERALISED OEDEMA [None]
  - PYREXIA [None]
  - DRUG RASH WITH EOSINOPHILIA AND SYSTEMIC SYMPTOMS [None]
